FAERS Safety Report 24565311 (Version 1)
Quarter: 2024Q4

REPORT INFORMATION
  Report Type: Spontaneous
  Country: US (occurrence: None)
  Receive Date: 20241029
  Receipt Date: 20241029
  Transmission Date: 20250115
  Serious: Yes (Hospitalization)
  Sender: Public
  Company Number: None

PATIENT
  Age: 52 Year
  Sex: Female

DRUGS (1)
  1. ACETAMINOPHEN [Suspect]
     Active Substance: ACETAMINOPHEN
     Indication: Pain
     Route: 048
     Dates: start: 20240308, end: 20240308

REACTIONS (8)
  - Respiratory depression [None]
  - Vomiting [None]
  - Electrocardiogram QT prolonged [None]
  - Liver function test increased [None]
  - Agitation [None]
  - Intentional product use issue [None]
  - Analgesic drug level increased [None]
  - Blood alcohol increased [None]

NARRATIVE: CASE EVENT DATE: 20240308
